FAERS Safety Report 20748954 (Version 3)
Quarter: 2023Q4

REPORT INFORMATION
  Report Type: Report from Study
  Country: FR (occurrence: FR)
  Receive Date: 20220426
  Receipt Date: 20231227
  Transmission Date: 20240109
  Serious: No
  Sender: FDA-Public Use
  Company Number: FR-ROCHE-2911952

PATIENT
  Age: 69 Year
  Sex: Female
  Weight: 83 kg

DRUGS (15)
  1. BEVACIZUMAB [Suspect]
     Active Substance: BEVACIZUMAB
     Indication: Lung cancer metastatic
     Dosage: UNK
     Route: 065
     Dates: start: 20210204
  2. PACLITAXEL [Suspect]
     Active Substance: PACLITAXEL
     Indication: Lung cancer metastatic
     Dosage: UNK
     Route: 065
     Dates: start: 20210204, end: 20210723
  3. ATEZOLIZUMAB [Suspect]
     Active Substance: ATEZOLIZUMAB
     Indication: Lung cancer metastatic
     Dosage: 1200 MILLIGRAM
     Route: 041
     Dates: start: 20200205
  4. HYDROCORTISONE [Concomitant]
     Active Substance: HYDROCORTISONE
     Dosage: UNK, QD
     Dates: start: 20200827
  5. CYAMEMAZINE [Concomitant]
     Active Substance: CYAMEMAZINE
     Dosage: UNK UNK, QD
     Dates: start: 20191016
  6. XARELTO [Concomitant]
     Active Substance: RIVAROXABAN
     Dosage: UNK UNK, QD
     Dates: start: 20200723
  7. RAMIPRIL [Concomitant]
     Active Substance: RAMIPRIL
     Dosage: UNK UNK, QD
     Dates: start: 20210318
  8. XANAX [Concomitant]
     Active Substance: ALPRAZOLAM
     Dosage: UNK UNK, QD
     Dates: start: 20191003
  9. ERYTHROPOIETIN [Concomitant]
     Active Substance: ERYTHROPOIETIN
     Dosage: UNK, QWK
     Dates: start: 20210318
  10. PEMETREXED [Concomitant]
     Active Substance: PEMETREXED
     Indication: Neoplasm malignant
     Dosage: UNK
  11. CARBOPLATIN [Concomitant]
     Active Substance: CARBOPLATIN
     Indication: Neoplasm malignant
     Dosage: UNK
  12. PAROXETINE [Concomitant]
     Active Substance: PAROXETINE
     Dosage: UNK, QD
     Dates: start: 20191016
  13. CISPLATIN [Concomitant]
     Active Substance: CISPLATIN
     Indication: Neoplasm malignant
     Dosage: UNK
  14. DAFALGAN [Concomitant]
     Active Substance: ACETAMINOPHEN
     Dosage: UNK
     Dates: start: 20191016
  15. PRIMPERAN [Concomitant]
     Active Substance: METOCLOPRAMIDE HYDROCHLORIDE
     Dosage: UNK
     Dates: start: 20191003

REACTIONS (7)
  - Anaemia [Recovered/Resolved]
  - Hypertension [Recovered/Resolved]
  - Epistaxis [Recovered/Resolved]
  - Diarrhoea [Recovered/Resolved]
  - Nausea [Recovered/Resolved]
  - Vomiting [Recovered/Resolved]
  - Asthenia [Not Recovered/Not Resolved]

NARRATIVE: CASE EVENT DATE: 20210211
